FAERS Safety Report 16897373 (Version 2)
Quarter: 2021Q3

REPORT INFORMATION
  Report Type: Spontaneous
  Country: US (occurrence: US)
  Receive Date: 20191009
  Receipt Date: 20210712
  Transmission Date: 20211014
  Serious: Yes (Other)
  Sender: FDA-Public Use
  Company Number: US-TEVA-2019-US-1119681

PATIENT
  Sex: Female

DRUGS (3)
  1. VALSARTAN/HYDROCHLOROTHIAZIDE MYLAN [Suspect]
     Active Substance: HYDROCHLOROTHIAZIDE\VALSARTAN
     Indication: BLOOD PRESSURE ABNORMAL
     Dosage: DOSAGE DETAILS: 12.5/320 MG
     Route: 065
     Dates: start: 20121022, end: 20180923
  2. VALSARTAN/HYDROCHLOROTHIAZIDE ALEMBIC [Suspect]
     Active Substance: HYDROCHLOROTHIAZIDE\VALSARTAN
     Indication: BLOOD PRESSURE ABNORMAL
     Dosage: DOSAGE DETAILS: 12.5/320 MG
     Route: 065
     Dates: start: 20180131, end: 20180923
  3. VALSARTAN/HYDROCHLOROTHIAZIDE AUROBINDO [Suspect]
     Active Substance: HYDROCHLOROTHIAZIDE\VALSARTAN
     Indication: BLOOD PRESSURE ABNORMAL
     Dosage: DOSAGE DETAILS: 12.5/320 MG
     Route: 065
     Dates: start: 20130522, end: 20180923

REACTIONS (1)
  - Hepatic cancer [Unknown]
